FAERS Safety Report 18089711 (Version 1)
Quarter: 2020Q3

REPORT INFORMATION
  Report Type: Spontaneous
  Country: US (occurrence: US)
  Receive Date: 20200730
  Receipt Date: 20200730
  Transmission Date: 20201103
  Serious: No
  Sender: FDA-Public Use
  Company Number: US-GLAXOSMITHKLINE-US2020AMR141171

PATIENT
  Sex: Female

DRUGS (1)
  1. NUCALA [Suspect]
     Active Substance: MEPOLIZUMAB
     Indication: ASTHMA
     Dosage: 100 MG, CYC, ONCE A MONTH
     Route: 065
     Dates: start: 201908, end: 201911

REACTIONS (3)
  - Illness [Unknown]
  - Hypersensitivity [Unknown]
  - Cough [Unknown]
